FAERS Safety Report 12863142 (Version 4)
Quarter: 2016Q4

REPORT INFORMATION
  Report Type: Report from Study
  Country: DE (occurrence: DE)
  Receive Date: 20161019
  Receipt Date: 20161130
  Transmission Date: 20170207
  Serious: Yes (Death, Life-Threatening, Hospitalization, Other)
  Sender: FDA-Public Use
  Company Number: DE-INCYTE CORPORATION-2016IN006516

PATIENT
  Age: 87 Year
  Sex: Male
  Weight: 60 kg

DRUGS (2)
  1. METFORMIN [Concomitant]
     Active Substance: METFORMIN HYDROCHLORIDE
     Indication: DIABETES MELLITUS
     Dosage: 500 MG, BID
     Route: 065
  2. INCB018424 [Suspect]
     Active Substance: RUXOLITINIB
     Indication: PRIMARY MYELOFIBROSIS
     Dosage: 5 MG, QD
     Route: 048
     Dates: start: 20140818, end: 20160701

REACTIONS (9)
  - Anaemia [Recovering/Resolving]
  - Jaundice [Unknown]
  - Death [Fatal]
  - Hepatic enzyme increased [Fatal]
  - Faeces pale [Unknown]
  - Nausea [Unknown]
  - Chromaturia [Unknown]
  - Fatigue [Unknown]
  - Fall [Fatal]

NARRATIVE: CASE EVENT DATE: 20160201
